FAERS Safety Report 21918529 (Version 1)
Quarter: 2023Q1

REPORT INFORMATION
  Report Type: Spontaneous
  Country: JP (occurrence: JP)
  Receive Date: 20230127
  Receipt Date: 20230127
  Transmission Date: 20230418
  Serious: Yes (Other)
  Sender: FDA-Public Use
  Company Number: JP-KYOWAKIRIN-2023AKK000929

PATIENT

DRUGS (2)
  1. PEGFILGRASTIM [Suspect]
     Active Substance: PEGFILGRASTIM
     Indication: Colony stimulating factor therapy
     Dosage: UNK,THE PATIENT RECEIVED CONSECUTIVE ADMINISTRATION OF G-LASTA ON DAY 4 .
     Route: 058
  2. AMRUBICIN HYDROCHLORIDE [Concomitant]
     Active Substance: AMRUBICIN HYDROCHLORIDE
     Indication: Lung neoplasm malignant
     Dosage: UNK,THE PATIENT RECEIVED CONSECUTIVE ADMINISTRATION OF CALSED BETWEEN DAY 1 AND DAY 3.
     Route: 065

REACTIONS (2)
  - Febrile neutropenia [Unknown]
  - Neutrophil count decreased [Unknown]
